FAERS Safety Report 9841245 (Version 1)
Quarter: 2014Q1

REPORT INFORMATION
  Report Type: Spontaneous
  Country: US (occurrence: None)
  Receive Date: 20140123
  Receipt Date: 20140123
  Transmission Date: 20141002
  Serious: Yes (Other)
  Sender: FDA-Public Use
  Company Number: None

PATIENT
  Age: 53 Year
  Sex: Female
  Weight: 70.76 kg

DRUGS (14)
  1. ENBREL [Suspect]
     Indication: RHEUMATOID ARTHRITIS
     Route: 058
     Dates: start: 20070131, end: 20131014
  2. METHADONE [Concomitant]
  3. SINGULAIR [Concomitant]
  4. LEXAPRO [Concomitant]
  5. PRISTIQ [Concomitant]
  6. DYRENIUM [Concomitant]
  7. POTASSIUM [Concomitant]
  8. ALPRAZOLAM [Concomitant]
  9. REMODULIN [Concomitant]
  10. TRIAMTERENE [Concomitant]
  11. BUMEX [Concomitant]
  12. MUPIROCIN OINTMENT [Concomitant]
  13. FENTANYL PATCHES [Concomitant]
  14. TACROLIMUS [Concomitant]

REACTIONS (1)
  - Herpes zoster [None]
